FAERS Safety Report 25408357 (Version 6)
Quarter: 2025Q3

REPORT INFORMATION
  Report Type: Spontaneous
  Country: US (occurrence: US)
  Receive Date: 20250606
  Receipt Date: 20250927
  Transmission Date: 20251021
  Serious: No
  Sender: SANOFI AVENTIS
  Company Number: US-SA-2025SA160928

PATIENT
  Age: 56 Year
  Sex: Male

DRUGS (13)
  1. DUPIXENT [Suspect]
     Active Substance: DUPILUMAB
     Indication: Dermatitis
     Dosage: 300 MG, QOW
     Route: 058
     Dates: start: 202504, end: 202507
  2. DUPIXENT [Suspect]
     Active Substance: DUPILUMAB
     Indication: Eczema
  3. DUPIXENT [Suspect]
     Active Substance: DUPILUMAB
     Indication: Rheumatoid arthritis
  4. TREPROSTINIL SODIUM [Suspect]
     Active Substance: TREPROSTINIL SODIUM
     Indication: Pulmonary arterial hypertension
     Dosage: 64 UG, QID
     Route: 055
     Dates: start: 202304
  5. WINREVAIR [Suspect]
     Active Substance: SOTATERCEPT-CSRK
  6. OPSUMIT [Concomitant]
     Active Substance: MACITENTAN
  7. TADALAFIL [Concomitant]
     Active Substance: TADALAFIL
  8. HYDRALAZINE [Concomitant]
     Active Substance: HYDRALAZINE HYDROCHLORIDE
  9. ENTRESTO [Concomitant]
     Active Substance: SACUBITRIL\VALSARTAN
  10. BUMEX [Concomitant]
     Active Substance: BUMETANIDE
  11. XELJANZ [Concomitant]
     Active Substance: TOFACITINIB CITRATE
  12. WINREVAIR [Concomitant]
     Active Substance: SOTATERCEPT-CSRK
  13. TYVASO [Concomitant]
     Active Substance: TREPROSTINIL

REACTIONS (16)
  - Epistaxis [Unknown]
  - Cough [Unknown]
  - Rash macular [Unknown]
  - Rash [Unknown]
  - Flushing [Unknown]
  - Erythema [Unknown]
  - Urticaria [Unknown]
  - Skin exfoliation [Unknown]
  - Abdominal discomfort [Unknown]
  - Swelling [Unknown]
  - Diarrhoea [Unknown]
  - Rash erythematous [Unknown]
  - Pruritus [Unknown]
  - Skin burning sensation [Unknown]
  - Condition aggravated [Unknown]
  - Drug ineffective for unapproved indication [Unknown]

NARRATIVE: CASE EVENT DATE: 20250101
